FAERS Safety Report 12608537 (Version 1)
Quarter: 2016Q3

REPORT INFORMATION
  Report Type: Spontaneous
  Country: ES (occurrence: ES)
  Receive Date: 20160729
  Receipt Date: 20160729
  Transmission Date: 20161109
  Serious: Yes (Other)
  Sender: FDA-Public Use
  Company Number: ES-ECLAT PHARMACEUTICALS-2016ECL00011

PATIENT
  Age: 57 Year
  Sex: Female

DRUGS (2)
  1. EUTIROX [Concomitant]
     Active Substance: LEVOTHYROXINE SODIUM
     Dosage: 100 ?G, UNK
     Dates: start: 20151031
  2. PARIET [Suspect]
     Active Substance: RABEPRAZOLE SODIUM
     Dosage: 20 MG, 1X/DAY
     Route: 048
     Dates: start: 2015, end: 20160704

REACTIONS (1)
  - Glomerular filtration rate decreased [Unknown]

NARRATIVE: CASE EVENT DATE: 20151101
